FAERS Safety Report 6468090-2 (Version None)
Quarter: 2009Q4

REPORT INFORMATION
  Report Type: 
  Country: None (occurrence: None)
  Receive Date: 20091127
  Receipt Date: 20091113
  Transmission Date: 20100525
  Serious: Yes (Other)
  Sender: FDA-Public Use
  Company Number: 1000010328

PATIENT
  Age: 37 Year
  Sex: Female

DRUGS (4)
  1. ESCITALOPRAM OXALATE [Suspect]
     Indication: DEPRESSION
     Dosage: 10 MG (10 MG, 1 IN 1 D), ORAL
     Route: 048
     Dates: start: 20090201
  2. TAMOXIFEN (20 MILLIGRAM, TABLETS) [Suspect]
     Indication: NEOPLASM MALIGNANT
     Dosage: 20 MG (20 MG, 1 IN 1 D), ORAL
     Route: 048
     Dates: start: 20080401
  3. TRIMIPAMIN [Suspect]
     Indication: SLEEP DISORDER
     Dosage: 10-40 MG, ORAL
     Route: 048
     Dates: start: 20090220, end: 20090318
  4. GOSERELIN [Concomitant]

REACTIONS (4)
  - DRUG INTERACTION [None]
  - DRUG LEVEL DECREASED [None]
  - LEUKOPENIA [None]
  - THROMBOCYTOPENIA [None]
